FAERS Safety Report 4316540-X (Version None)
Quarter: 2004Q1

REPORT INFORMATION
  Report Type: 
  Country: None (occurrence: None)
  Receive Date: 20040310
  Receipt Date: 20040128
  Transmission Date: 20041129
  Serious: No
  Sender: FDA-Public Use
  Company Number: FROV000163

PATIENT
  Sex: Female

DRUGS (1)
  1. FROVA [Suspect]
     Indication: MIGRAINE
     Dosage: ORAL
     Route: 048

REACTIONS (1)
  - THROAT TIGHTNESS [None]
